FAERS Safety Report 6021593-7 (Version None)
Quarter: 2008Q4

REPORT INFORMATION
  Report Type: 
  Country: None (occurrence: None)
  Receive Date: 20081229
  Receipt Date: 20081222
  Transmission Date: 20090506
  Serious: Yes (Death, Hospitalization, Other)
  Sender: FDA-Public Use
  Company Number: PHBS2008CH06717

PATIENT
  Age: 79 Year
  Sex: Female

DRUGS (1)
  1. PAMIDRONATE DISODIUM [Suspect]
     Indication: MULTIPLE MYELOMA
     Dosage: 90 MG, QMO
     Route: 042

REACTIONS (6)
  - BLOOD ALBUMIN DECREASED [None]
  - DEATH [None]
  - FOCAL SEGMENTAL GLOMERULOSCLEROSIS [None]
  - OEDEMA PERIPHERAL [None]
  - PROTEINURIA [None]
  - RENAL CANCER METASTATIC [None]
